FAERS Safety Report 18355379 (Version 1)
Quarter: 2020Q4

REPORT INFORMATION
  Report Type: Spontaneous
  Country: GR (occurrence: GR)
  Receive Date: 20201007
  Receipt Date: 20201007
  Transmission Date: 20210114
  Serious: Yes (Hospitalization)
  Sender: FDA-Public Use
  Company Number: GR-PFIZER INC-2020378637

PATIENT
  Age: 7 Year
  Sex: Male

DRUGS (1)
  1. GENOTROPIN [Suspect]
     Active Substance: SOMATROPIN
     Indication: GROWTH HORMONE DEFICIENCY
     Dosage: 3.6 MG (5.3 MG PEN) FOR 6 DAYS
     Dates: end: 202009

REACTIONS (3)
  - Emphysema [Recovering/Resolving]
  - Respiratory disorder [Recovering/Resolving]
  - Patent ductus arteriosus [Recovering/Resolving]
